FAERS Safety Report 8264018-3 (Version None)
Quarter: 2012Q2

REPORT INFORMATION
  Report Type: 
  Country: None (occurrence: None)
  Receive Date: 20120406
  Receipt Date: 20120330
  Transmission Date: 20120825
  Serious: No
  Sender: FDA-Public Use
  Company Number: US-BIOGENIDEC-2012BI007031

PATIENT
  Sex: Female

DRUGS (3)
  1. AVONEX [Concomitant]
     Indication: MULTIPLE SCLEROSIS
     Route: 030
     Dates: start: 20080110
  2. AVONEX [Concomitant]
     Route: 030
     Dates: start: 20120322
  3. TYSABRI [Suspect]
     Indication: MULTIPLE SCLEROSIS
     Route: 042
     Dates: start: 20110921, end: 20120217

REACTIONS (9)
  - FEELING COLD [None]
  - CHILLS [None]
  - TREMOR [None]
  - CHEST DISCOMFORT [None]
  - DRUG INEFFECTIVE [None]
  - PALPITATIONS [None]
  - SWOLLEN TONGUE [None]
  - FATIGUE [None]
  - ANXIETY [None]
